FAERS Safety Report 10146932 (Version 2)
Quarter: 2014Q2

REPORT INFORMATION
  Report Type: Spontaneous
  Country: US (occurrence: US)
  Receive Date: 20140501
  Receipt Date: 20140522
  Transmission Date: 20141212
  Serious: Yes (Other)
  Sender: FDA-Public Use
  Company Number: US-BAYER-2014-061024

PATIENT
  Age: 67 Year
  Sex: Male
  Weight: 83.9 kg

DRUGS (4)
  1. ALEVE TABLET [Suspect]
     Indication: INFLAMMATION
     Dosage: 1 DF, QD
     Route: 048
  2. BAYER GENUINE ASPIRIN ORIGINAL STRENGTH [Suspect]
     Route: 048
  3. AMLODIPINE [Concomitant]
  4. FISH OIL [Concomitant]

REACTIONS (5)
  - Haemorrhagic diathesis [Recovered/Resolved]
  - Therapeutic response changed [Not Recovered/Not Resolved]
  - Incorrect drug administration duration [None]
  - Expired product administered [None]
  - Drug administration error [None]
